FAERS Safety Report 6148639-X (Version None)
Quarter: 2009Q2

REPORT INFORMATION
  Report Type: 
  Country: None (occurrence: None)
  Receive Date: 20090408
  Receipt Date: 20090330
  Transmission Date: 20091009
  Serious: Yes (Hospitalization)
  Sender: FDA-Public Use
  Company Number: US-WATSON-2009-02109

PATIENT
  Age: 39 Year
  Sex: Male

DRUGS (4)
  1. GEMFIBROZIL [Suspect]
     Indication: HYPERTRIGLYCERIDAEMIA
     Dosage: 300 MG, SINGLE CONTROLLED RECHALLENGE
     Route: 048
  2. GEMFIBROZIL [Suspect]
     Dosage: 600 MG, SINGLE
     Route: 048
  3. TIAGABINE HCL [Suspect]
     Indication: COMPLEX PARTIAL SEIZURES
     Dosage: 16 MG, TID
     Route: 048
  4. CARBAMAZEPINE [Concomitant]
     Indication: COMPLEX PARTIAL SEIZURES
     Dosage: 500 MG, BID
     Route: 048

REACTIONS (6)
  - CONFUSIONAL STATE [None]
  - CONVULSION [None]
  - DRUG INTERACTION [None]
  - DRUG LEVEL INCREASED [None]
  - DRUG TOXICITY [None]
  - LOSS OF CONSCIOUSNESS [None]
